FAERS Safety Report 23232781 (Version 2)
Quarter: 2023Q4

REPORT INFORMATION
  Report Type: Spontaneous
  Country: FI (occurrence: FI)
  Receive Date: 20231128
  Receipt Date: 20231220
  Transmission Date: 20240110
  Serious: Yes (Hospitalization)
  Sender: FDA-Public Use
  Company Number: FI-AMGEN-FINSP2023206913

PATIENT

DRUGS (2)
  1. BEVACIZUMAB [Suspect]
     Active Substance: BEVACIZUMAB
     Indication: Product used for unknown indication
     Dosage: UNK
     Route: 065
     Dates: start: 2022
  2. TRASTUZUMAB [Suspect]
     Active Substance: TRASTUZUMAB
     Indication: Product used for unknown indication
     Dosage: UNK
     Route: 065
     Dates: start: 2022

REACTIONS (18)
  - Tremor [Unknown]
  - Hypotension [Unknown]
  - Erythema [Unknown]
  - Chest discomfort [Unknown]
  - Mucosal disorder [Unknown]
  - Cutaneous symptom [Unknown]
  - Oropharyngeal pain [Unknown]
  - Dizziness [Unknown]
  - Oxygen saturation decreased [Unknown]
  - Gastrointestinal disorder [Unknown]
  - Pyrexia [Unknown]
  - Nausea [Unknown]
  - Abdominal pain [Unknown]
  - Pain [Unknown]
  - Hypertension [Unknown]
  - Dyspnoea [Unknown]
  - Cough [Unknown]
  - Blood pressure increased [Unknown]

NARRATIVE: CASE EVENT DATE: 20220101
